FAERS Safety Report 17758330 (Version 1)
Quarter: 2020Q2

REPORT INFORMATION
  Report Type: Report from Study
  Country: BE (occurrence: BE)
  Receive Date: 20200507
  Receipt Date: 20200507
  Transmission Date: 20200714
  Serious: Yes (Congenital Anomaly, Other)
  Sender: FDA-Public Use
  Company Number: BE-GILEAD-2020-0464265

PATIENT

DRUGS (1)
  1. EMTRICITABINE/RILPIVIRINE/TENOFOVIR ALAFENAMIDE [Suspect]
     Active Substance: EMTRICITABINE\RILPIVIRINE HYDROCHLORIDE\TENOFOVIR ALAFENAMIDE FUMARATE
     Indication: HIV INFECTION
     Dosage: 250 MG, QD
     Route: 064
     Dates: start: 20171114

REACTIONS (2)
  - Congenital choroid plexus cyst [Unknown]
  - Foetal exposure during pregnancy [Unknown]

NARRATIVE: CASE EVENT DATE: 20200302
